FAERS Safety Report 9738898 (Version 2)
Quarter: 2013Q4

REPORT INFORMATION
  Report Type: Spontaneous
  Country: DE (occurrence: DE)
  Receive Date: 20131209
  Receipt Date: 20131209
  Transmission Date: 20140711
  Serious: Yes (Other)
  Sender: FDA-Public Use
  Company Number: DE-JNJFOC-20131006558

PATIENT
  Age: 84 Year
  Sex: Male
  Weight: 74.83 kg

DRUGS (2)
  1. XARELTO [Suspect]
     Indication: CEREBROVASCULAR ACCIDENT PROPHYLAXIS
     Route: 048
     Dates: start: 201308, end: 201309
  2. XARELTO [Suspect]
     Indication: ATRIAL FIBRILLATION
     Route: 048
     Dates: start: 201308, end: 201309

REACTIONS (4)
  - Wound haemorrhage [Unknown]
  - Limb injury [Unknown]
  - Blood urine present [Recovered/Resolved]
  - Medication error [Unknown]
